FAERS Safety Report 11089730 (Version 3)
Quarter: 2016Q3

REPORT INFORMATION
  Report Type: Spontaneous
  Country: US (occurrence: US)
  Receive Date: 20150505
  Receipt Date: 20160825
  Transmission Date: 20161109
  Serious: Yes (Life-Threatening, Hospitalization)
  Sender: FDA-Public Use
  Company Number: US-BAYER-2015-185489

PATIENT
  Age: 28 Year
  Sex: Female
  Weight: 81.63 kg

DRUGS (2)
  1. MIRENA [Suspect]
     Active Substance: LEVONORGESTREL
     Indication: CONTRACEPTION
     Dosage: 20 MCG/24HR, CONT
     Route: 015
     Dates: start: 20071206, end: 20120913
  2. ALESSE 28 [Concomitant]
     Active Substance: ETHINYL ESTRADIOL\LEVONORGESTREL

REACTIONS (9)
  - Abdominal pain lower [None]
  - Uterine perforation [None]
  - Emotional distress [None]
  - General physical health deterioration [None]
  - Depression [None]
  - Anxiety [None]
  - Pain [None]
  - Injury [None]
  - Anhedonia [None]

NARRATIVE: CASE EVENT DATE: 2012
